FAERS Safety Report 19125848 (Version 2)
Quarter: 2021Q3

REPORT INFORMATION
  Report Type: Spontaneous
  Country: US (occurrence: US)
  Receive Date: 20210412
  Receipt Date: 20210708
  Transmission Date: 20211014
  Serious: No
  Sender: FDA-Public Use
  Company Number: US-INTRA-CELLULAR THERAPIES, INC.-2021ICT00150

PATIENT
  Age: 25 Year
  Sex: Female

DRUGS (3)
  1. LITHIUM CARBONATE. [Concomitant]
     Active Substance: LITHIUM CARBONATE
     Dosage: 1200 MG DAILY
  2. DOXEPIN [Concomitant]
     Active Substance: DOXEPIN
     Dosage: 100 MG, 1X/DAY IN THE EVENING
  3. CAPLYTA [Suspect]
     Active Substance: LUMATEPERONE
     Indication: BIPOLAR DISORDER
     Dosage: 42 MG, 1X/DAY
     Route: 048
     Dates: start: 20210216, end: 20210316

REACTIONS (3)
  - Diarrhoea [Recovered/Resolved]
  - Off label use [Recovered/Resolved]
  - Sedation [Recovered/Resolved]

NARRATIVE: CASE EVENT DATE: 2021
